FAERS Safety Report 9595235 (Version 2)
Quarter: 2013Q4

REPORT INFORMATION
  Report Type: Spontaneous
  Country: US (occurrence: US)
  Receive Date: 20131004
  Receipt Date: 20131004
  Transmission Date: 20140711
  Serious: Yes (Other)
  Sender: FDA-Public Use
  Company Number: US-NAPPMUNDI-USA-2012-0092073

PATIENT
  Age: 36 Year
  Sex: Male

DRUGS (2)
  1. BUTRANS [Suspect]
     Indication: PAIN
     Dosage: 10 MCG/HR, UNK
     Route: 062
  2. BUTRANS [Suspect]
     Dosage: 20 MCG/HR, UNK
     Route: 062
     Dates: start: 20120229, end: 20120319

REACTIONS (4)
  - Presyncope [Recovered/Resolved]
  - Palpitations [Recovered/Resolved]
  - Dyspnoea [Recovered/Resolved]
  - Anger [Unknown]
